FAERS Safety Report 9128079 (Version 1)
Quarter: 2013Q1

REPORT INFORMATION
  Report Type: Report from Study
  Country: BR (occurrence: BR)
  Receive Date: 20130228
  Receipt Date: 20130228
  Transmission Date: 20140127
  Serious: Yes (Disabling, Other)
  Sender: FDA-Public Use
  Company Number: BR-BAYER-2013-000355

PATIENT
  Age: 69 Year
  Sex: Male

DRUGS (2)
  1. NEXAVAR [Suspect]
     Dosage: 1 TABLET EVERY 12 HOURS
     Route: 048
     Dates: start: 20121108
  2. NEXAVAR [Suspect]
     Dosage: 2 TABLETS EVERY 12 HOURS
     Dates: start: 201212

REACTIONS (8)
  - Wound [Recovering/Resolving]
  - Activities of daily living impaired [None]
  - Skin wound [None]
  - Pyrexia [Recovered/Resolved]
  - Fatigue [Recovered/Resolved]
  - Decreased appetite [Recovered/Resolved]
  - Weight decreased [Recovered/Resolved]
  - Skin exfoliation [Recovering/Resolving]
